FAERS Safety Report 8623468-3 (Version None)
Quarter: 2012Q3

REPORT INFORMATION
  Report Type: 
  Country: None (occurrence: None)
  Receive Date: 20120827
  Receipt Date: 20120816
  Transmission Date: 20120928
  Serious: Yes (Hospitalization)
  Sender: FDA-Public Use
  Company Number: FR-ASTRAZENECA-2012SE60242

PATIENT
  Age: 68 Year
  Sex: Male

DRUGS (8)
  1. CRESTOR [Suspect]
     Indication: DYSLIPIDAEMIA
     Route: 048
  2. ATENOLOL [Concomitant]
     Route: 048
  3. COUMADIN [Concomitant]
     Route: 048
  4. OMEPRAZOLE [Suspect]
     Route: 048
     Dates: start: 20110301, end: 20120805
  5. POTASSIUM CHLORIDE [Concomitant]
  6. ALLOPURINOL [Concomitant]
  7. ALLOPURINOL [Concomitant]
     Route: 048
  8. AMLODIPINE BESYLATE [Concomitant]
     Route: 048

REACTIONS (5)
  - HYPOKALAEMIA [None]
  - CONVULSION [None]
  - HYPOCALCAEMIA [None]
  - HYPOMAGNESAEMIA [None]
  - MUSCLE SPASMS [None]
